FAERS Safety Report 4519896-8 (Version None)
Quarter: 2004Q4

REPORT INFORMATION
  Report Type: 
  Country: None (occurrence: None)
  Receive Date: 20041202
  Receipt Date: 20041202
  Transmission Date: 20050328
  Serious: Yes (Hospitalization)
  Sender: FDA-Public Use
  Company Number: None

PATIENT
  Sex: Male

DRUGS (13)
  1. IBUPROFEN [Suspect]
     Indication: GOUT
     Dosage: 200 MG TID ORAL
     Route: 048
  2. IBUPROFEN [Suspect]
     Indication: PAIN
     Dosage: 200 MG TID ORAL
     Route: 048
  3. PYRIDOXINE HCL [Concomitant]
  4. DONEPEZIL HCL [Concomitant]
  5. CITALOPRAM [Concomitant]
  6. ASPIRIN [Concomitant]
  7. TAMSULOSIN [Concomitant]
  8. COLCHICINE [Concomitant]
  9. ALLOPURINOL [Concomitant]
  10. APAP TAB [Concomitant]
  11. INH [Concomitant]
  12. INSULIN [Concomitant]
  13. OMEPRAZOLE [Concomitant]

REACTIONS (1)
  - MELAENA [None]
